FAERS Safety Report 5626524-7 (Version None)
Quarter: 2008Q1

REPORT INFORMATION
  Report Type: 
  Country: None (occurrence: None)
  Receive Date: 20080214
  Receipt Date: 20080131
  Transmission Date: 20080703
  Serious: Yes (Hospitalization, Other)
  Sender: FDA-Public Use
  Company Number: US-ASTRAZENECA-2007UW02197

PATIENT
  Age: 17599 Day
  Sex: Female
  Weight: 102.3 kg

DRUGS (8)
  1. SEROQUEL [Suspect]
     Indication: SCHIZOPHRENIA
     Dosage: 100 MG - 800 MG
     Route: 048
     Dates: start: 20000401
  2. GEODON [Concomitant]
     Dosage: 40 MG - 160 MG
     Route: 048
     Dates: start: 20020501, end: 20020901
  3. HALDOL [Concomitant]
     Dates: start: 20010103, end: 20020401
  4. RISPERDAL [Concomitant]
     Dosage: 4 MG - 16 MG
     Route: 048
     Dates: start: 20020801
  5. ZYPREXA [Concomitant]
     Route: 048
     Dates: start: 20010103, end: 20020501
  6. DEPAKOTE [Concomitant]
     Route: 048
     Dates: start: 20030101
  7. LITHIUM CARBONATE [Concomitant]
     Route: 048
     Dates: start: 20010101, end: 20020901
  8. LAMICTAL [Concomitant]
     Route: 048
     Dates: start: 20011101, end: 20020901

REACTIONS (20)
  - ANAEMIA [None]
  - BACK INJURY [None]
  - BLOOD CHOLESTEROL INCREASED [None]
  - BLOOD TRIGLYCERIDES INCREASED [None]
  - CHEST DISCOMFORT [None]
  - COUGH [None]
  - DELUSION [None]
  - DIABETIC FOOT [None]
  - DIABETIC NEUROPATHY [None]
  - EAR INFECTION [None]
  - EMPHYSEMA [None]
  - EYE INFECTION [None]
  - HYPERTENSION [None]
  - INFECTION [None]
  - NIGHT SWEATS [None]
  - ONYCHOMYCOSIS [None]
  - PHARYNGITIS [None]
  - RENAL FAILURE [None]
  - TACHYCARDIA [None]
  - TYPE 2 DIABETES MELLITUS [None]
